FAERS Safety Report 20894742 (Version 1)
Quarter: 2022Q2

REPORT INFORMATION
  Report Type: Spontaneous
  Country: US (occurrence: None)
  Receive Date: 20220527
  Receipt Date: 20220527
  Transmission Date: 20220720
  Serious: Yes (Hospitalization)
  Sender: FDA-Public Use
  Company Number: None

PATIENT
  Age: 3 Year
  Sex: Male

DRUGS (2)
  1. NUWIQ [Suspect]
     Active Substance: ANTIHEMOPHILIC FACTOR, HUMAN RECOMBINANT
     Indication: Factor VIII deficiency
     Dosage: OTHER QUANTITY : 729 UNITS;?FREQUENCY : DAILY;?INFUSE 729 UNITS INTRAVENOUSLY 1 TIME DAILY 3 DAYS PE
     Route: 042
     Dates: start: 20220516
  2. NUWIQ [Suspect]
     Active Substance: ANTIHEMOPHILIC FACTOR, HUMAN RECOMBINANT
     Indication: Factor VIII deficiency
     Dosage: OTHER QUANTITY : 729 UNITS;?FREQUENCY : DAILY;? INFUSE 729 UNITS INTRAVENOUSLY 1 TIME DAILY 3 DAYS P
     Route: 042
     Dates: start: 20220516

REACTIONS (1)
  - Haemarthrosis [None]

NARRATIVE: CASE EVENT DATE: 20220520
